FAERS Safety Report 12381471 (Version 1)
Quarter: 2016Q2

REPORT INFORMATION
  Report Type: Spontaneous
  Country: US (occurrence: None)
  Receive Date: 20160517
  Receipt Date: 20160517
  Transmission Date: 20160815
  Serious: Yes (Death, Hospitalization)
  Sender: FDA-Public Use
  Company Number: None

PATIENT
  Age: 9 Year
  Sex: Female
  Weight: 34.3 kg

DRUGS (6)
  1. DAUNORUBICIN [Suspect]
     Active Substance: DAUNORUBICIN
     Dates: end: 20160428
  2. CYTARABINE. [Suspect]
     Active Substance: CYTARABINE
     Dates: end: 20160419
  3. ONCASPAR [Suspect]
     Active Substance: PEGASPARGASE
     Dates: end: 20160424
  4. DEXAMETHASONE. [Suspect]
     Active Substance: DEXAMETHASONE
     Dates: end: 20160504
  5. METHOTREXATE [Suspect]
     Active Substance: METHOTREXATE
     Dates: end: 20160428
  6. VINCRISTINE SULFATE. [Suspect]
     Active Substance: VINCRISTINE SULFATE
     Dates: end: 20160428

REACTIONS (8)
  - Hypotension [None]
  - Peripheral swelling [None]
  - Skin discolouration [None]
  - Tachycardia [None]
  - Medical device site haemorrhage [None]
  - Pyrexia [None]
  - Injection site haematoma [None]
  - Cardiac arrest [None]

NARRATIVE: CASE EVENT DATE: 20160505
